FAERS Safety Report 18299333 (Version 1)
Quarter: 2020Q3

REPORT INFORMATION
  Report Type: Spontaneous
  Country: ZA (occurrence: ZA)
  Receive Date: 20200922
  Receipt Date: 20200922
  Transmission Date: 20201103
  Serious: Yes (Other)
  Sender: FDA-Public Use
  Company Number: ZA-VALIDUS PHARMACEUTICALS LLC-ZA-2020VAL000768

PATIENT

DRUGS (5)
  1. HYDROCHLOROTHIAZIDE. [Suspect]
     Active Substance: HYDROCHLOROTHIAZIDE
     Indication: BLOOD PRESSURE ABNORMAL
     Dosage: 25 MG, IN THE MORNING
     Route: 065
  2. FUROSEMIDE. [Suspect]
     Active Substance: FUROSEMIDE
     Indication: JOINT SWELLING
     Dosage: 40 MG, UNK
     Route: 065
  3. HYDROCHLOROTHIAZIDE. [Suspect]
     Active Substance: HYDROCHLOROTHIAZIDE
     Dosage: 50 MG, QD, DOSE WAS DOUBLED
     Route: 065
  4. NIFEDIPINE. [Suspect]
     Active Substance: NIFEDIPINE
     Indication: BLOOD PRESSURE ABNORMAL
     Dosage: UNK
     Route: 065
  5. DICLOFENAC                         /00372302/ [Suspect]
     Active Substance: DICLOFENAC
     Indication: GINGIVAL PAIN
     Dosage: UNK
     Route: 065

REACTIONS (12)
  - Cardiac failure congestive [Unknown]
  - Dyspnoea [Unknown]
  - Joint swelling [Unknown]
  - Blood pressure increased [Unknown]
  - Gout [Unknown]
  - Pain [Unknown]
  - Drug interaction [Unknown]
  - Hypertension [Unknown]
  - Blood uric acid increased [Unknown]
  - Oedema peripheral [Unknown]
  - Gait inability [Unknown]
  - Vasoconstriction [Unknown]
